FAERS Safety Report 18956144 (Version 4)
Quarter: 2021Q2

REPORT INFORMATION
  Report Type: Spontaneous
  Country: US (occurrence: US)
  Receive Date: 20210302
  Receipt Date: 20210621
  Transmission Date: 20210717
  Serious: Yes (Hospitalization)
  Sender: FDA-Public Use
  Company Number: US-DECIPHERA PHARMACEUTICALS LLC-2021US000157

PATIENT
  Age: 62 Year
  Sex: Female

DRUGS (3)
  1. QINLOCK [Suspect]
     Active Substance: RIPRETINIB
     Indication: GASTRIC CANCER
     Dosage: 100 MILLIGRAM, QD
     Route: 048
     Dates: start: 202008, end: 20210214
  2. QINLOCK [Suspect]
     Active Substance: RIPRETINIB
     Dosage: 100 MILLIGRAM, QD, LAST WEDNESDAY
     Route: 048
  3. QINLOCK [Suspect]
     Active Substance: RIPRETINIB
     Dosage: 100 MILLIGRAM, QD, LAST WEDNESDAY
     Route: 048
     Dates: end: 20210224

REACTIONS (10)
  - Impaired healing [Unknown]
  - Hyperkeratosis [Unknown]
  - Ileus [Unknown]
  - Muscle spasms [Unknown]
  - Fatigue [Unknown]
  - Blister [Unknown]
  - Gastrointestinal infection [Unknown]
  - Vomiting [Unknown]
  - Ephelides [Unknown]
  - Alopecia [Unknown]

NARRATIVE: CASE EVENT DATE: 20210215
